FAERS Safety Report 16200330 (Version 1)
Quarter: 2019Q2

REPORT INFORMATION
  Report Type: Spontaneous
  Country: US (occurrence: US)
  Receive Date: 20190416
  Receipt Date: 20190416
  Transmission Date: 20190711
  Serious: No
  Sender: FDA-Public Use
  Company Number: US-LUPIN PHARMACEUTICALS INC.-2018-04005

PATIENT
  Sex: Female

DRUGS (1)
  1. AFTER PILL (LEVONORGESTREL) [Suspect]
     Active Substance: LEVONORGESTREL
     Indication: PRODUCT USED FOR UNKNOWN INDICATION
     Dosage: UNK, SINGLE
     Route: 048

REACTIONS (3)
  - Abdominal pain upper [Unknown]
  - Product container issue [Unknown]
  - Vomiting [Unknown]
